FAERS Safety Report 6369209-4 (Version None)
Quarter: 2009Q3

REPORT INFORMATION
  Report Type: 
  Country: None (occurrence: None)
  Receive Date: 20090916
  Receipt Date: 20090908
  Transmission Date: 20100115
  Serious: Yes (Life-Threatening, Hospitalization, Other)
  Sender: FDA-Public Use
  Company Number: ADR20332009

PATIENT
  Age: 69 Year
  Sex: Male

DRUGS (6)
  1. RISPERIDONE [Suspect]
     Indication: AGITATION
     Dosage: 2.5MG ORAL
     Route: 048
  2. RISPERIDONE [Suspect]
     Indication: CONFUSIONAL STATE
     Dosage: 2.5MG ORAL
     Route: 048
  3. ARIPIPRAZOLE [Concomitant]
  4. DOMPERIDONE [Concomitant]
  5. GAVISCON [Concomitant]
  6. LANSOPRAZOLE [Concomitant]

REACTIONS (2)
  - HYPOGLYCAEMIA [None]
  - INSULINOMA [None]
